FAERS Safety Report 23596556 (Version 5)
Quarter: 2025Q4

REPORT INFORMATION
  Report Type: Report from Study
  Country: US (occurrence: US)
  Receive Date: 20240305
  Receipt Date: 20251014
  Transmission Date: 20260117
  Serious: Yes (Other)
  Sender: TAKEDA
  Company Number: US-TAKEDA-US202029444

PATIENT
  Age: 53 Year
  Sex: Female

DRUGS (2)
  1. HUMAN IMMUNOGLOBULIN G [Suspect]
     Active Substance: HUMAN IMMUNOGLOBULIN G
     Indication: Immunodeficiency common variable
     Dosage: 55 GRAM, MONTHLY
  2. HUMAN IMMUNOGLOBULIN G [Suspect]
     Active Substance: HUMAN IMMUNOGLOBULIN G
     Indication: Primary immunodeficiency syndrome
     Dosage: 55 GRAM, Q3WEEKS

REACTIONS (15)
  - Lower respiratory tract infection [Unknown]
  - Pneumonia [Not Recovered/Not Resolved]
  - Dysphonia [Unknown]
  - Bronchitis [Unknown]
  - Blood test abnormal [Unknown]
  - Malaise [Unknown]
  - COVID-19 [Unknown]
  - Hypersomnia [Unknown]
  - Ear disorder [Recovering/Resolving]
  - Sinus disorder [Recovering/Resolving]
  - Ear infection [Unknown]
  - Thirst [Recovering/Resolving]
  - Stress at work [Unknown]
  - Anxiety [Unknown]
  - Fatigue [Not Recovered/Not Resolved]

NARRATIVE: CASE EVENT DATE: 20200909
